FAERS Safety Report 14222189 (Version 1)
Quarter: 2017Q4

REPORT INFORMATION
  Report Type: Spontaneous
  Country: FR (occurrence: FR)
  Receive Date: 20171124
  Receipt Date: 20171124
  Transmission Date: 20180321
  Serious: Yes (Disabling, Other)
  Sender: FDA-Public Use
  Company Number: FR-MERCK KGAA-2034996

PATIENT
  Age: 34 Year
  Sex: Female

DRUGS (1)
  1. NOVOTHYROX [Suspect]
     Active Substance: LEVOTHYROXINE SODIUM
     Indication: PRODUCT USED FOR UNKNOWN INDICATION
     Dates: start: 2017

REACTIONS (26)
  - Oesophageal pain [None]
  - Weight decreased [None]
  - Pain [None]
  - Arthralgia [None]
  - Depression [None]
  - Aggression [None]
  - Arrhythmia [None]
  - Hypoaesthesia [None]
  - Asthenia [None]
  - Headache [None]
  - Constipation [None]
  - Dyspnoea exertional [None]
  - Insomnia [None]
  - Palpitations [None]
  - Stress [None]
  - Fatigue [None]
  - Libido decreased [None]
  - Abdominal pain upper [None]
  - Crying [None]
  - Decreased interest [None]
  - Anxiety [None]
  - Affective disorder [None]
  - Loss of personal independence in daily activities [None]
  - Vertigo [None]
  - Blood thyroid stimulating hormone decreased [None]
  - Muscle spasms [None]

NARRATIVE: CASE EVENT DATE: 2017
